FAERS Safety Report 6409070-2 (Version None)
Quarter: 2009Q4

REPORT INFORMATION
  Report Type: 
  Country: None (occurrence: None)
  Receive Date: 20091019
  Receipt Date: 20091019
  Transmission Date: 20100525
  Serious: No
  Sender: FDA-Public Use
  Company Number: None

PATIENT
  Age: 55 Year
  Sex: Male
  Weight: 77.1115 kg

DRUGS (1)
  1. VYTORIN [Suspect]
     Dosage: SINGLE DAILY PO
     Route: 048
     Dates: start: 20050112, end: 20080115

REACTIONS (3)
  - ASTHENIA [None]
  - HYPERHIDROSIS [None]
  - MALAISE [None]
